FAERS Safety Report 23646219 (Version 1)
Quarter: 2024Q1

REPORT INFORMATION
  Report Type: Spontaneous
  Country: CA (occurrence: CA)
  Receive Date: 20240319
  Receipt Date: 20240319
  Transmission Date: 20240410
  Serious: Yes (Other)
  Sender: FDA-Public Use
  Company Number: CA-CELLTRION INC.-2024CA006534

PATIENT

DRUGS (2)
  1. INFLIXIMAB [Suspect]
     Active Substance: INFLIXIMAB
     Dosage: UNK
  2. XARELTO [Suspect]
     Active Substance: RIVAROXABAN

REACTIONS (5)
  - Bone swelling [Recovering/Resolving]
  - Ecchymosis [Recovering/Resolving]
  - Faeces soft [Recovering/Resolving]
  - Skeletal injury [Recovering/Resolving]
  - Skin abrasion [Recovering/Resolving]
